FAERS Safety Report 24307456 (Version 1)
Quarter: 2024Q3

REPORT INFORMATION
  Report Type: Spontaneous
  Country: FR (occurrence: FR)
  Receive Date: 20240911
  Receipt Date: 20240911
  Transmission Date: 20241016
  Serious: Yes (Hospitalization, Other)
  Sender: MYLAN
  Company Number: None

PATIENT
  Age: 44 Year
  Sex: Male

DRUGS (6)
  1. PAROXETINE [Suspect]
     Active Substance: PAROXETINE
     Indication: Product used for unknown indication
     Dosage: UNK
     Route: 048
     Dates: start: 20050120, end: 20050120
  2. REQUIP [Suspect]
     Active Substance: ROPINIROLE HYDROCHLORIDE
     Indication: Parkinson^s disease
     Dosage: 9 MILLIGRAM, FREQUENCY OF PRODUCT : Z
     Route: 048
     Dates: start: 20030321, end: 200510
  3. REQUIP [Suspect]
     Active Substance: ROPINIROLE HYDROCHLORIDE
     Dosage: UNK
     Route: 048
     Dates: start: 20040601
  4. Celestene [Concomitant]
     Indication: Product used for unknown indication
     Dosage: 2 MILLIGRAM (2 MG, 3D)
     Route: 048
     Dates: start: 20040609
  5. BENSERAZIDE HYDROCHLORIDE\LEVODOPA [Concomitant]
     Active Substance: BENSERAZIDE HYDROCHLORIDE\LEVODOPA
     Indication: Parkinson^s disease
     Dosage: VARIABLE DOSE, Z
     Route: 048
     Dates: start: 20051031
  6. PIRIBEDIL [Concomitant]
     Active Substance: PIRIBEDIL
     Indication: Parkinson^s disease
     Dosage: 50 MILLIGRAM (50 MG, 3D)
     Route: 048
     Dates: start: 20050925, end: 20051031

REACTIONS (21)
  - Erectile dysfunction [Unknown]
  - Mania [Recovered/Resolved]
  - Suicide attempt [Unknown]
  - Eating disorder [Unknown]
  - Transvestism [Recovered/Resolved]
  - Paraphilia [Unknown]
  - Excessive masturbation [Recovered/Resolved]
  - Quality of life decreased [Unknown]
  - Behaviour disorder [Unknown]
  - Excessive sexual fantasies [Recovered/Resolved]
  - Libido increased [Recovering/Resolving]
  - Personality disorder [Recovered/Resolved]
  - Theft [Unknown]
  - Homosexuality [Unknown]
  - Exhibitionism [Unknown]
  - Gambling disorder [Recovered/Resolved]
  - Depression [Unknown]
  - Somnolence [Unknown]
  - Nausea [Unknown]
  - Off label use [Unknown]
  - Overdose [Unknown]

NARRATIVE: CASE EVENT DATE: 20050120
